FAERS Safety Report 7209450-1 (Version None)
Quarter: 2010Q4

REPORT INFORMATION
  Report Type: 
  Country: None (occurrence: None)
  Receive Date: 20101222
  Receipt Date: 20101215
  Transmission Date: 20110411
  Serious: Yes (Other)
  Sender: FDA-Public Use
  Company Number: TRP_07458_2010

PATIENT
  Age: 72 Year
  Sex: Female

DRUGS (2)
  1. RIBAVIRIN [Suspect]
     Indication: HEPATITIS C
     Dosage: (DF)
  2. PEGINTERFERON ALFA [Suspect]
     Indication: HEPATITIS C
     Dosage: (DF)

REACTIONS (3)
  - ATRIOVENTRICULAR BLOCK COMPLETE [None]
  - SARCOIDOSIS [None]
  - UVEITIS [None]
